FAERS Safety Report 6006252-9 (Version None)
Quarter: 2008Q4

REPORT INFORMATION
  Report Type: 
  Country: None (occurrence: None)
  Receive Date: 20081217
  Receipt Date: 20081208
  Transmission Date: 20090506
  Serious: Yes (Other)
  Sender: FDA-Public Use
  Company Number: US-ROCHE-602142

PATIENT
  Age: 74 Year
  Sex: Female

DRUGS (6)
  1. BONIVA [Suspect]
     Indication: OSTEOPOROSIS
     Route: 065
     Dates: start: 20060101
  2. ZOMETA [Suspect]
     Indication: DRUG USE FOR UNKNOWN INDICATION
     Dosage: EVERY TWO WEEKS
     Route: 042
  3. LORAZEPAM [Concomitant]
     Dosage: AS NEEDED TO SLEEP AT NIGHT
  4. LEVAQUIN [Concomitant]
  5. SYNTHROID [Concomitant]
  6. COUMADIN [Concomitant]
     Dosage: JUST STARTED

REACTIONS (6)
  - ASTHENIA [None]
  - CHEST PAIN [None]
  - FORMICATION [None]
  - INCONTINENCE [None]
  - THROMBOSIS [None]
  - WEIGHT DECREASED [None]
